FAERS Safety Report 14632187 (Version 2)
Quarter: 2018Q2

REPORT INFORMATION
  Report Type: Spontaneous
  Country: US (occurrence: US)
  Receive Date: 20180313
  Receipt Date: 20180514
  Transmission Date: 20180711
  Serious: No
  Sender: FDA-Public Use
  Company Number: US-BAYER-2018-045918

PATIENT
  Age: 44 Year
  Sex: Female

DRUGS (7)
  1. ARNICA [Concomitant]
     Active Substance: ARNICA MONTANA FLOWER
     Indication: MYALGIA
     Dosage: 4 TIMES PER DAY
  2. MULTIVITAMIN [Concomitant]
     Active Substance: VITAMINS
  3. MIRENA [Suspect]
     Active Substance: LEVONORGESTREL
     Indication: MENORRHAGIA
     Dosage: 20 MCG/24HR, CONT
     Route: 015
     Dates: start: 20140307
  4. MIRENA [Suspect]
     Active Substance: LEVONORGESTREL
  5. ARMOUR THYROID [Concomitant]
     Active Substance: THYROID, PORCINE
     Indication: HYPOTHYROIDISM
     Dosage: 45 MG, QD
  6. MAGNESIUM [Concomitant]
     Active Substance: MAGNESIUM
  7. VITAMIN B3 [Concomitant]
     Active Substance: NIACIN
     Dosage: 1 TIME PER DAY

REACTIONS (10)
  - Nerve compression [None]
  - Palpitations [None]
  - Vaginal haemorrhage [Recovered/Resolved]
  - Headache [Not Recovered/Not Resolved]
  - Vaginal discharge [Not Recovered/Not Resolved]
  - Fatigue [None]
  - Abdominal pain [Not Recovered/Not Resolved]
  - Breast cyst [None]
  - Back pain [Not Recovered/Not Resolved]
  - Malaise [Not Recovered/Not Resolved]

NARRATIVE: CASE EVENT DATE: 2016
